FAERS Safety Report 6471034-0 (Version None)
Quarter: 2009Q4

REPORT INFORMATION
  Report Type: 
  Country: None (occurrence: None)
  Receive Date: 20091203
  Receipt Date: 20091118
  Transmission Date: 20100525
  Serious: Yes (Other)
  Sender: FDA-Public Use
  Company Number: AU-GENENTECH-295152

PATIENT
  Age: 62 Year
  Sex: Female

DRUGS (3)
  1. LUCENTIS [Suspect]
     Indication: MACULAR DEGENERATION
     Dosage: UNK
     Dates: start: 20090409
  2. LUCENTIS [Suspect]
     Dosage: UNK
     Dates: end: 20091028
  3. ASPIRIN [Concomitant]
     Indication: DRUG USE FOR UNKNOWN INDICATION

REACTIONS (2)
  - HYPHAEMA [None]
  - INTRAOCULAR PRESSURE INCREASED [None]
